FAERS Safety Report 20024948 (Version 1)
Quarter: 2021Q4

REPORT INFORMATION
  Report Type: Spontaneous
  Country: US (occurrence: US)
  Receive Date: 20211102
  Receipt Date: 20211102
  Transmission Date: 20220303
  Serious: No
  Sender: FDA-Public Use
  Company Number: US-PFIZER INC-202101319963

PATIENT
  Age: 76 Year
  Sex: Female

DRUGS (1)
  1. TOVIAZ [Suspect]
     Active Substance: FESOTERODINE FUMARATE
     Dosage: 4 MG (QUANTITY FOR 90 DAYS)

REACTIONS (3)
  - Condition aggravated [Unknown]
  - Hypertonic bladder [Unknown]
  - Vaginal prolapse [Not Recovered/Not Resolved]

NARRATIVE: CASE EVENT DATE: 20210409
